FAERS Safety Report 8475078-9 (Version None)
Quarter: 2012Q2

REPORT INFORMATION
  Report Type: 
  Country: None (occurrence: None)
  Receive Date: 20120628
  Receipt Date: 20120620
  Transmission Date: 20120825
  Serious: Yes (Other)
  Sender: FDA-Public Use
  Company Number: FR-NOVOPROD-345200

PATIENT
  Age: 13 Year
  Sex: Female
  Weight: 46 kg

DRUGS (5)
  1. HYDROCORTISONE ACETATE [Concomitant]
     Dosage: 15 MG, QD
     Route: 048
     Dates: start: 20110601
  2. NORDITROPIN [Suspect]
     Dosage: UNKNOWN
     Route: 058
  3. LEVOTHYROXINE SODIUM [Concomitant]
     Dosage: 75 A?G, QD
     Route: 048
     Dates: start: 20110701
  4. MINIRIN                            /00361901/ [Concomitant]
     Dosage: 180 A?G, QD
     Dates: start: 20110601
  5. NORDITROPIN [Suspect]
     Indication: GROWTH HORMONE DEFICIENCY
     Dosage: 1.2 MG, QD
     Route: 058
     Dates: start: 20120123, end: 20120208

REACTIONS (3)
  - OEDEMA PERIPHERAL [None]
  - SWELLING FACE [None]
  - FLUID RETENTION [None]
